FAERS Safety Report 5444929-4 (Version None)
Quarter: 2007Q3

REPORT INFORMATION
  Report Type: 
  Country: None (occurrence: None)
  Receive Date: 20070906
  Receipt Date: 20070829
  Transmission Date: 20080115
  Serious: Yes (Other)
  Sender: FDA-Public Use
  Company Number: B0485734A

PATIENT
  Age: 80 Year
  Sex: Male

DRUGS (1)
  1. AUGMENTIN '125' [Suspect]
     Indication: INFECTION
     Dosage: 1TAB TWICE PER DAY
     Route: 048
     Dates: start: 20070826, end: 20070904

REACTIONS (2)
  - CHOKING [None]
  - DYSPHAGIA [None]
